FAERS Safety Report 8246084-4 (Version None)
Quarter: 2012Q1

REPORT INFORMATION
  Report Type: 
  Country: None (occurrence: None)
  Receive Date: 20120330
  Receipt Date: 20120322
  Transmission Date: 20120608
  Serious: Yes (Hospitalization)
  Sender: FDA-Public Use
  Company Number: JP-ELI_LILLY_AND_COMPANY-JP201203000389

PATIENT
  Age: 85 Year
  Sex: Female

DRUGS (1)
  1. FORTEO [Suspect]
     Dosage: UNK
     Route: 058
     Dates: end: 20120301

REACTIONS (10)
  - PYREXIA [None]
  - INJECTION SITE HAEMATOMA [None]
  - DECREASED APPETITE [None]
  - DIZZINESS [None]
  - MUSCLE SPASMS [None]
  - ASTHENIA [None]
  - VOMITING [None]
  - NAUSEA [None]
  - CONSTIPATION [None]
  - HEADACHE [None]
